FAERS Safety Report 20236731 (Version 1)
Quarter: 2021Q4

REPORT INFORMATION
  Report Type: Spontaneous
  Country: US (occurrence: None)
  Receive Date: 20211227
  Receipt Date: 20211227
  Transmission Date: 20220303
  Serious: Yes (Other)
  Sender: FDA-Public Use
  Company Number: None

PATIENT
  Age: 37 Year
  Sex: Female
  Weight: 94.8 kg

DRUGS (1)
  1. CASIRIVIMAB\IMDEVIMAB [Suspect]
     Active Substance: CASIRIVIMAB\IMDEVIMAB
     Dosage: OTHER FREQUENCY : NOW;?
     Route: 041
     Dates: start: 20211227, end: 20211227

REACTIONS (5)
  - Hypersensitivity [None]
  - Chest discomfort [None]
  - Chest discomfort [None]
  - Neuralgia [None]
  - Pain [None]

NARRATIVE: CASE EVENT DATE: 20211227
